FAERS Safety Report 4727035-3 (Version None)
Quarter: 2005Q3

REPORT INFORMATION
  Report Type: 
  Country: None (occurrence: None)
  Receive Date: 20050726
  Receipt Date: 20050713
  Transmission Date: 20060218
  Serious: Yes (Hospitalization)
  Sender: FDA-Public Use
  Company Number: 2005SP001940

PATIENT
  Age: 25 Year
  Sex: Female
  Weight: 53.0709 kg

DRUGS (7)
  1. LUNESTA [Suspect]
     Dosage: 1 MG; HS; ORAL
     Route: 048
     Dates: start: 20050614, end: 20050627
  2. NALTREXONE HCL [Suspect]
     Indication: SELF INJURIOUS BEHAVIOUR
     Dosage: 25 MG
     Dates: start: 20050615, end: 20050627
  3. NALTREXONE HCL [Suspect]
     Indication: SUICIDAL IDEATION
     Dosage: 25 MG
     Dates: start: 20050615, end: 20050627
  4. TRILEPTAL [Suspect]
     Indication: ANXIETY
     Dosage: SEE IMAGE
     Dates: start: 20050101, end: 20050601
  5. TRILEPTAL [Suspect]
     Indication: DEPRESSION
     Dosage: SEE IMAGE
     Dates: start: 20050101, end: 20050601
  6. TRILEPTAL [Suspect]
     Indication: ANXIETY
     Dosage: SEE IMAGE
     Dates: start: 20050701
  7. TRILEPTAL [Suspect]
     Indication: DEPRESSION
     Dosage: SEE IMAGE
     Dates: start: 20050701

REACTIONS (6)
  - BIPOLAR I DISORDER [None]
  - BIPOLAR II DISORDER [None]
  - DRUG INTERACTION [None]
  - MYALGIA [None]
  - SOMNOLENCE [None]
  - UNRESPONSIVE TO VERBAL STIMULI [None]
